FAERS Safety Report 22612243 (Version 1)
Quarter: 2023Q2

REPORT INFORMATION
  Report Type: Spontaneous
  Country: US (occurrence: US)
  Receive Date: 20230617
  Receipt Date: 20230617
  Transmission Date: 20230722
  Serious: Yes (Other)
  Sender: FDA-Public Use
  Company Number: US-ABBVIE-5284659

PATIENT

DRUGS (2)
  1. DURYSTA [Suspect]
     Active Substance: BIMATOPROST
     Indication: Intraocular pressure test
     Dosage: LEFT EYE
     Route: 050
  2. DURYSTA [Suspect]
     Active Substance: BIMATOPROST
     Indication: Glaucoma
     Dosage: RIGHT EYE
     Route: 050

REACTIONS (4)
  - Corneal oedema [Unknown]
  - Implantation complication [Unknown]
  - Corneal opacity [Unknown]
  - Product administered at inappropriate site [Unknown]
